FAERS Safety Report 14484000 (Version 1)
Quarter: 2018Q1

REPORT INFORMATION
  Report Type: Spontaneous
  Country: US (occurrence: US)
  Receive Date: 20180205
  Receipt Date: 20180205
  Transmission Date: 20180509
  Serious: Yes (Other)
  Sender: FDA-Public Use
  Company Number: PHEH2018US003254

PATIENT
  Age: 70 Year
  Sex: Female

DRUGS (3)
  1. LETROZOLE. [Suspect]
     Active Substance: LETROZOLE
     Indication: BREAST CANCER METASTATIC
     Dosage: 2.5 MG, QD
     Route: 048
     Dates: start: 201708
  2. PALBOCICLIB [Suspect]
     Active Substance: PALBOCICLIB
     Indication: BREAST CANCER METASTATIC
     Dosage: 125 MG, QD
     Route: 048
     Dates: start: 201708
  3. PALBOCICLIB [Suspect]
     Active Substance: PALBOCICLIB
     Dosage: 100 MG, CYCLIC
     Route: 065
     Dates: start: 201709

REACTIONS (14)
  - Metastases to bone [Recovering/Resolving]
  - Metastases to lung [Recovering/Resolving]
  - Fatigue [Not Recovered/Not Resolved]
  - Neutropenia [Unknown]
  - Metastases to thorax [Recovering/Resolving]
  - Pulmonary hilum mass [Unknown]
  - Alopecia [Not Recovered/Not Resolved]
  - Metastases to chest wall [Recovering/Resolving]
  - Malaise [Unknown]
  - Cataract [Unknown]
  - White blood cell count decreased [Recovered/Resolved]
  - Dizziness [Recovered/Resolved]
  - Nausea [Recovered/Resolved]
  - Sternal fracture [Unknown]

NARRATIVE: CASE EVENT DATE: 201708
